FAERS Safety Report 4617911-4 (Version None)
Quarter: 2005Q1

REPORT INFORMATION
  Report Type: 
  Country: None (occurrence: None)
  Receive Date: 20050322
  Receipt Date: 20050311
  Transmission Date: 20050727
  Serious: Yes (Death)
  Sender: FDA-Public Use
  Company Number: 200310446BYL

PATIENT
  Age: 79 Year
  Sex: Female

DRUGS (5)
  1. CIPROFLOXACIN HCL [Suspect]
     Indication: PNEUMONIA
     Dosage: 600 MG, TOTAL DAILY, INTRAVENOUS DRIP
     Route: 041
     Dates: start: 20021021, end: 20021023
  2. SANDOGLOBULIN [Concomitant]
  3. HYDROCORTONE [Concomitant]
  4. INOVAN [Concomitant]
  5. MEROPEN [Concomitant]

REACTIONS (1)
  - ACUTE MYOCARDIAL INFARCTION [None]
